FAERS Safety Report 9104032 (Version 3)
Quarter: 2013Q2

REPORT INFORMATION
  Report Type: Spontaneous
  Country: PT (occurrence: PT)
  Receive Date: 20130219
  Receipt Date: 20130624
  Transmission Date: 20140414
  Serious: Yes (Hospitalization, Disabling, Other)
  Sender: FDA-Public Use
  Company Number: PT-ROCHE-1192344

PATIENT
  Sex: Female

DRUGS (1)
  1. MABTHERA [Suspect]
     Indication: RHEUMATOID ARTHRITIS
     Route: 042
     Dates: start: 20100802, end: 20100816

REACTIONS (7)
  - Neurotoxicity [Unknown]
  - Mobility decreased [Not Recovered/Not Resolved]
  - Nervous system disorder [Not Recovered/Not Resolved]
  - Ataxia [Not Recovered/Not Resolved]
  - Diplopia [Not Recovered/Not Resolved]
  - Nystagmus [Not Recovered/Not Resolved]
  - Muscle atrophy [Not Recovered/Not Resolved]
